FAERS Safety Report 4524732-X (Version None)
Quarter: 2004Q4

REPORT INFORMATION
  Report Type: 
  Country: None (occurrence: None)
  Receive Date: 20041213
  Receipt Date: 20041130
  Transmission Date: 20050328
  Serious: Yes (Hospitalization)
  Sender: FDA-Public Use
  Company Number: JP-JNJFOC-20041201645

PATIENT
  Sex: Female
  Weight: 48 kg

DRUGS (11)
  1. REMICADE [Suspect]
     Route: 042
  2. REMICADE [Suspect]
     Route: 042
  3. REMICADE [Suspect]
     Route: 042
  4. REMICADE [Suspect]
     Route: 042
  5. REMICADE [Suspect]
     Indication: RHEUMATOID ARTHRITIS
     Route: 042
  6. METHOTREXATE [Suspect]
     Indication: RHEUMATOID ARTHRITIS
  7. FOLIAMIN [Concomitant]
     Route: 049
  8. NU-LOTAN [Concomitant]
     Route: 049
  9. MEVALOTIN [Concomitant]
     Route: 049
  10. JUVELA [Concomitant]
     Route: 049
  11. KELNAC [Concomitant]
     Route: 049

REACTIONS (3)
  - AMYLOIDOSIS [None]
  - BLOOD CREATININE INCREASED [None]
  - DRUG INTERACTION [None]
